FAERS Safety Report 20310129 (Version 2)
Quarter: 2022Q1

REPORT INFORMATION
  Report Type: Spontaneous
  Country: DE (occurrence: DE)
  Receive Date: 20220107
  Receipt Date: 20220125
  Transmission Date: 20220423
  Serious: Yes (Other)
  Sender: FDA-Public Use
  Company Number: DE-INCYTE CORPORATION-2021IN011407

PATIENT
  Age: 19 Year
  Sex: Female

DRUGS (6)
  1. ICLUSIG [Suspect]
     Active Substance: PONATINIB
     Indication: Metastatic malignant melanoma
     Dosage: 45 MILLIGRAM, QD
     Route: 065
     Dates: start: 20210723
  2. ICLUSIG [Suspect]
     Active Substance: PONATINIB
     Indication: Metastases to central nervous system
     Dosage: UNK
     Route: 065
     Dates: end: 20210923
  3. ICLUSIG [Suspect]
     Active Substance: PONATINIB
     Dosage: UNK UNK, QOD
     Route: 065
     Dates: start: 20210930, end: 20211007
  4. ICLUSIG [Suspect]
     Active Substance: PONATINIB
     Dosage: UNK UNK, Q72H
     Route: 065
     Dates: start: 20211007, end: 20211020
  5. ICLUSIG [Suspect]
     Active Substance: PONATINIB
     Dosage: 30 MILLIGRAM, QD
     Route: 065
     Dates: start: 20211020, end: 20211207
  6. PREDNISOLONE [Concomitant]
     Active Substance: PREDNISOLONE
     Indication: Pain
     Dosage: UNK
     Route: 065

REACTIONS (6)
  - Metastases to central nervous system [Unknown]
  - Disease progression [Unknown]
  - Aspartate aminotransferase increased [Unknown]
  - Alanine aminotransferase increased [Unknown]
  - Gamma-glutamyltransferase increased [Unknown]
  - Off label use [Unknown]

NARRATIVE: CASE EVENT DATE: 20210729
